FAERS Safety Report 9894253 (Version 1)
Quarter: 2014Q1

REPORT INFORMATION
  Report Type: Spontaneous
  Country: US (occurrence: US)
  Receive Date: 20140213
  Receipt Date: 20140213
  Transmission Date: 20141002
  Serious: Yes (Other)
  Sender: FDA-Public Use
  Company Number: US-GLAXOSMITHKLINE-A1060013A

PATIENT
  Sex: Female

DRUGS (2)
  1. LAMICTAL XR [Suspect]
     Indication: CONVULSION
     Route: 048
  2. LAMOTRIGINE [Suspect]
     Indication: CONVULSION
     Route: 048

REACTIONS (3)
  - Convulsion [Unknown]
  - Live birth [Unknown]
  - Exposure during pregnancy [Unknown]
